FAERS Safety Report 8088445-2 (Version None)
Quarter: 2012Q1

REPORT INFORMATION
  Report Type: 
  Country: None (occurrence: None)
  Receive Date: 20120128
  Receipt Date: 20110603
  Transmission Date: 20120608
  Serious: No
  Sender: FDA-Public Use
  Company Number: US-ABBOTT-11P-163-0730731-00

PATIENT
  Sex: Female
  Weight: 72.186 kg

DRUGS (2)
  1. PATIENT DECLINED [Concomitant]
     Indication: PRODUCT USED FOR UNKNOWN INDICATION
  2. HUMIRA [Suspect]
     Indication: RHEUMATOID ARTHRITIS
     Dates: start: 20090801

REACTIONS (1)
  - VITREOUS FLOATERS [None]
